FAERS Safety Report 19761802 (Version 1)
Quarter: 2021Q3

REPORT INFORMATION
  Report Type: Spontaneous
  Country: US (occurrence: US)
  Receive Date: 20210826
  Receipt Date: 20210826
  Transmission Date: 20211014
  Serious: Yes (Hospitalization)
  Sender: FDA-Public Use
  Company Number: None

PATIENT
  Age: 47 Year
  Sex: Male

DRUGS (1)
  1. CAPECITABINE TAB [Suspect]
     Active Substance: CAPECITABINE
     Route: 048
     Dates: start: 202105

REACTIONS (7)
  - Constipation [None]
  - Infusion related reaction [None]
  - Off label use [None]
  - Incorrect dose administered [None]
  - Abdominal discomfort [None]
  - Product dose omission issue [None]
  - Nausea [None]

NARRATIVE: CASE EVENT DATE: 20210715
